FAERS Safety Report 5960868-4 (Version None)
Quarter: 2008Q4

REPORT INFORMATION
  Report Type: 
  Country: None (occurrence: None)
  Receive Date: 20081118
  Receipt Date: 20081112
  Transmission Date: 20090506
  Serious: Yes (Death)
  Sender: FDA-Public Use
  Company Number: 2008-185834-NL

PATIENT
  Age: 77 Year
  Sex: Male

DRUGS (8)
  1. DEXAMETHASONE [Suspect]
     Indication: APPETITE DISORDER
     Dosage: 2 MG
     Dates: start: 20070620
  2. DEXAMETHASONE [Suspect]
     Indication: ASTHENIA
     Dosage: 2 MG
     Dates: start: 20070620
  3. INTERFERON [Concomitant]
  4. SUNITINIB [Concomitant]
  5. NYSTATIN [Concomitant]
  6. AMOXICILLIN [Concomitant]
  7. DIAMORPHINE [Concomitant]
  8. MIDAZOLAM HCL [Concomitant]

REACTIONS (17)
  - AGITATION [None]
  - CIRCULATORY COLLAPSE [None]
  - CONFUSIONAL STATE [None]
  - DISCOMFORT [None]
  - FACE OEDEMA [None]
  - INCONTINENCE [None]
  - LOWER RESPIRATORY TRACT INFECTION [None]
  - MUCOSAL ULCERATION [None]
  - MUSCLE ATROPHY [None]
  - ORAL CANDIDIASIS [None]
  - PALLOR [None]
  - PETECHIAE [None]
  - PNEUMONIA ASPIRATION [None]
  - REFUSAL OF TREATMENT BY PATIENT [None]
  - SOMNOLENCE [None]
  - URINE ODOUR ABNORMAL [None]
  - WEIGHT DECREASED [None]
